FAERS Safety Report 22260189 (Version 1)
Quarter: 2023Q2

REPORT INFORMATION
  Report Type: Spontaneous
  Country: US (occurrence: None)
  Receive Date: 20230425
  Receipt Date: 20230425
  Transmission Date: 20230721
  Serious: No
  Sender: FDA-Public Use
  Company Number: None

PATIENT
  Age: 68 Year
  Sex: Male

DRUGS (1)
  1. OPZELURA [Suspect]
     Active Substance: RUXOLITINIB PHOSPHATE
     Indication: Skin disorder
     Dosage: FREQUENCY : TWICE A DAY;?
     Route: 061
     Dates: start: 202304

REACTIONS (2)
  - Scar [None]
  - Administration site pain [None]
